FAERS Safety Report 26183782 (Version 2)
Quarter: 2025Q4

REPORT INFORMATION
  Report Type: Spontaneous
  Country: JP (occurrence: JP)
  Receive Date: 20251221
  Receipt Date: 20251229
  Transmission Date: 20260118
  Serious: No
  Sender: AMGEN
  Company Number: JP-AMGEN-JPNSP2025220005

PATIENT
  Age: 8 Decade

DRUGS (2)
  1. LUMAKRAS [Suspect]
     Active Substance: SOTORASIB
     Indication: K-ras gene mutation
     Dosage: 960 MILLIGRAM, (THERAPY TEMPORARLY WITHELD)
     Route: 048
  2. LUMAKRAS [Suspect]
     Active Substance: SOTORASIB
     Indication: Non-small cell lung cancer

REACTIONS (1)
  - Hepatic function abnormal [Recovering/Resolving]
